FAERS Safety Report 18800224 (Version 1)
Quarter: 2021Q1

REPORT INFORMATION
  Report Type: Spontaneous
  Country: US (occurrence: US)
  Receive Date: 20210128
  Receipt Date: 20210128
  Transmission Date: 20210419
  Serious: Yes (Hospitalization, Other)
  Sender: FDA-Public Use
  Company Number: US-PURDUE-USA-2020-0175818

PATIENT
  Age: 24 Year
  Sex: Male

DRUGS (10)
  1. XANAX [Suspect]
     Active Substance: ALPRAZOLAM
     Indication: PAIN
     Route: 065
  2. OXYCODONE HYDROCHLORIDE (SIMILAR TO NDA 22?272) [Suspect]
     Active Substance: OXYCODONE HYDROCHLORIDE
     Indication: PAIN
     Dosage: UNK
     Route: 065
     Dates: start: 20080605
  3. OXYCODONE/ ACETAMINOPHEN TABLETS [Suspect]
     Active Substance: ACETAMINOPHEN\OXYCODONE HYDROCHLORIDE
     Indication: PAIN
     Dosage: UNK
     Route: 048
     Dates: start: 20080605
  4. PERCOCET                           /00446701/ [Suspect]
     Active Substance: ACETAMINOPHEN\OXYCODONE HYDROCHLORIDE\OXYCODONE TEREPHTHALATE
     Indication: PAIN
     Dosage: UNK
     Route: 048
     Dates: start: 20080605
  5. METHADONE [Suspect]
     Active Substance: METHADONE HYDROCHLORIDE
     Indication: PAIN
     Dosage: 90 MG, DAILY
     Route: 065
     Dates: start: 20080605
  6. HEROIN [Suspect]
     Active Substance: DIAMORPHINE
     Indication: PRODUCT USED FOR UNKNOWN INDICATION
     Dosage: 2 TO 4 GRAMS PER DAY
     Route: 042
  7. BUPRENORPHINE TRANSDERMAL PATCH (SIMILAR TO NDA 21?306) [Suspect]
     Active Substance: BUPRENORPHINE
     Indication: PAIN
     Dosage: UNK
     Route: 062
     Dates: start: 20080605
  8. ENDOCET [Suspect]
     Active Substance: ACETAMINOPHEN\OXYCODONE HYDROCHLORIDE
     Indication: PAIN
     Route: 065
  9. NARCAN [Suspect]
     Active Substance: NALOXONE HYDROCHLORIDE
     Indication: PAIN
     Route: 065
  10. BUTRANS [Suspect]
     Active Substance: BUPRENORPHINE
     Indication: PAIN
     Dosage: UNK
     Route: 062
     Dates: start: 20080605

REACTIONS (23)
  - Joint dislocation [Unknown]
  - Decreased appetite [Unknown]
  - Depression [Unknown]
  - Drug rehabilitation [Unknown]
  - Drug withdrawal syndrome [Unknown]
  - Syncope [Unknown]
  - Nerve injury [Unknown]
  - Hypoaesthesia [Unknown]
  - Tooth injury [Unknown]
  - Ear injury [Unknown]
  - Fall [Unknown]
  - Adverse reaction [Unknown]
  - Burns third degree [Unknown]
  - Rash erythematous [Unknown]
  - Drug dependence [Unknown]
  - Somnolence [Unknown]
  - Anxiety [Unknown]
  - Mental status changes [Unknown]
  - Abdominal pain [Unknown]
  - Hepatitis C [Unknown]
  - Overdose [Unknown]
  - Substance abuse [Unknown]
  - Seizure [Unknown]

NARRATIVE: CASE EVENT DATE: 20091025
